FAERS Safety Report 4311395-1 (Version None)
Quarter: 2004Q1

REPORT INFORMATION
  Report Type: 
  Country: None (occurrence: None)
  Receive Date: 20040304
  Receipt Date: 20040119
  Transmission Date: 20041129
  Serious: Yes (Hospitalization)
  Sender: FDA-Public Use
  Company Number: JP-BRISTOL-MYERS SQUIBB COMPANY-12482089

PATIENT
  Age: 40 Year
  Sex: Male

DRUGS (4)
  1. ZERIT [Suspect]
     Indication: ACQUIRED IMMUNODEFICIENCY SYNDROME
     Route: 048
     Dates: start: 20030325
  2. STOCRIN CAPS [Suspect]
     Indication: ACQUIRED IMMUNODEFICIENCY SYNDROME
     Route: 048
     Dates: start: 20030325
  3. EPIVIR [Suspect]
     Indication: ACQUIRED IMMUNODEFICIENCY SYNDROME
     Route: 048
     Dates: start: 20030325
  4. SUCRALFATE [Concomitant]
     Dates: start: 20030321

REACTIONS (2)
  - IMMUNE RECONSTITUTION SYNDROME [None]
  - PNEUMOCYSTIS CARINII PNEUMONIA [None]
